FAERS Safety Report 9031137 (Version 2)
Quarter: 2013Q2

REPORT INFORMATION
  Report Type: Spontaneous
  Country: DE (occurrence: DE)
  Receive Date: 20130123
  Receipt Date: 20130423
  Transmission Date: 20140414
  Serious: Yes (Other)
  Sender: FDA-Public Use
  Company Number: DE-INCYTE CORPORATION-2013IN000131

PATIENT
  Age: 77 Year
  Sex: Female

DRUGS (5)
  1. JAKAVI [Suspect]
     Dosage: 15 MG, BID
     Route: 048
     Dates: start: 201209
  2. JAKAVI [Suspect]
     Dosage: 7.5 MG, BID
     Route: 048
     Dates: start: 20121222
  3. JAKAVI [Suspect]
     Dosage: 5 MG, BID
     Route: 048
     Dates: start: 20130102
  4. THYROID [Concomitant]
  5. CHOLESTEROL- AND TRIGLYCERIDE REDUCERS [Concomitant]

REACTIONS (1)
  - Deafness [Unknown]
